FAERS Safety Report 4738041-7 (Version None)
Quarter: 2005Q3

REPORT INFORMATION
  Report Type: 
  Country: None (occurrence: None)
  Receive Date: 20050805
  Receipt Date: 20050805
  Transmission Date: 20060218
  Serious: Yes (Disabling)
  Sender: FDA-Public Use
  Company Number: None

PATIENT
  Age: 80 Year
  Sex: Male
  Weight: 104.3273 kg

DRUGS (2)
  1. LIPITOR [Suspect]
     Dosage: 1 A DAY
     Dates: start: 20031021, end: 20040901
  2. LEUPROLIDE ACETATE [Suspect]
     Dosage: 1 MO - EVERY 4 MOS
     Dates: start: 20020128, end: 20040901

REACTIONS (2)
  - HOT FLUSH [None]
  - MUSCULAR WEAKNESS [None]
